FAERS Safety Report 20111618 (Version 1)
Quarter: 2021Q4

REPORT INFORMATION
  Report Type: Spontaneous
  Country: US (occurrence: US)
  Receive Date: 20211125
  Receipt Date: 20211125
  Transmission Date: 20220303
  Serious: No
  Sender: FDA-Public Use
  Company Number: US-ESPERIONTHERAPEUTICS-2021USA01911

PATIENT
  Age: 72 Year
  Sex: Male
  Weight: 90.703 kg

DRUGS (4)
  1. NEXLETOL [Suspect]
     Active Substance: BEMPEDOIC ACID
     Indication: Low density lipoprotein increased
     Dosage: 180 MILLIGRAM, QD
     Route: 048
     Dates: start: 202108
  2. SOTALOL [Concomitant]
     Active Substance: SOTALOL
     Dosage: UNK
     Route: 048
  3. TAMSULOSIN [Concomitant]
     Active Substance: TAMSULOSIN
     Dosage: UNK
     Route: 048
  4. PRADAXA [Concomitant]
     Active Substance: DABIGATRAN ETEXILATE MESYLATE
     Dosage: UNK
     Route: 048

REACTIONS (3)
  - Temporomandibular joint syndrome [Not Recovered/Not Resolved]
  - Tenderness [Unknown]
  - Pain in jaw [Unknown]
